FAERS Safety Report 19612347 (Version 7)
Quarter: 2023Q2

REPORT INFORMATION
  Report Type: Report from Study
  Country: CN (occurrence: CN)
  Receive Date: 20210726
  Receipt Date: 20230412
  Transmission Date: 20230722
  Serious: Yes (Hospitalization, Other)
  Sender: FDA-Public Use
  Company Number: CN-BAXTER-2021BAX021493

PATIENT
  Age: 48 Year
  Sex: Female

DRUGS (18)
  1. CYCLOPHOSPHAMIDE [Suspect]
     Active Substance: CYCLOPHOSPHAMIDE
     Indication: Triple negative breast cancer
     Dosage: EVERY 2 WEEKS, 1ST TO 3D CYCLE OF PD-L1+T-EC REGIMEN
     Route: 042
  2. CYCLOPHOSPHAMIDE [Suspect]
     Active Substance: CYCLOPHOSPHAMIDE
     Dosage: 1.074 G, EVERY 2 WEEKS, FOURTH CYCLE (WEEK 1) OF PD-L1+T-EC REGIMEN, 28 DAYS AS A CYCLE
     Route: 042
     Dates: start: 20210421
  3. CYCLOPHOSPHAMIDE [Suspect]
     Active Substance: CYCLOPHOSPHAMIDE
     Dosage: 1.074 G, EVERY 2 WEEKS, FOURTH CYCLE (WEEK 3) OF PD-L1+T-EC REGIMEN
     Route: 042
     Dates: start: 20210513
  4. CYCLOPHOSPHAMIDE [Suspect]
     Active Substance: CYCLOPHOSPHAMIDE
     Dosage: 0.855 G, EVERY 2 WEEKS, FIFTH CYCLE (WEEK 1)  OF PD-L1+T-EC REGIMEN, MOST RECENT DOSE OF CYCLOPHOSPH
     Route: 042
     Dates: start: 20210604, end: 20210604
  5. ATEZOLIZUMAB [Suspect]
     Active Substance: ATEZOLIZUMAB
     Indication: Triple negative breast cancer
     Dosage: 840 MG, EVERY 2 WEEKS, 28 DAYS AS A CYCLE, SOLUTION, 1ST TO 3D CYCLE OF PD-L1+T-EC REGIMEN
     Route: 041
     Dates: start: 20210128
  6. ATEZOLIZUMAB [Suspect]
     Active Substance: ATEZOLIZUMAB
     Dosage: 840 MG, EVERY 2 WEEKS, FOURTH CYCLE (WEEK 1) OF PD-L1+T-EC REGIMEN, 28 DAYS AS A CYCLE, SOLUTION
     Route: 041
     Dates: start: 20210421
  7. ATEZOLIZUMAB [Suspect]
     Active Substance: ATEZOLIZUMAB
     Dosage: 840 MG, EVERY 2 WEEKS, FOURTH CYCLE (WEEK 3) OF PD-L1+T-EC REGIMEN, SOLUTION
     Route: 041
     Dates: start: 20210513
  8. ATEZOLIZUMAB [Suspect]
     Active Substance: ATEZOLIZUMAB
     Dosage: 840 MG, EVERY 2 WEEKS, FIFTH CYCLE (WEEK 1) OF PD-LL+T-EC REGIMEN, SOLUTION, RECENT DOSE OF ATEZOLIZ
     Route: 041
     Dates: start: 20210604, end: 20210604
  9. PACLITAXEL [Suspect]
     Active Substance: PACLITAXEL
     Indication: Triple negative breast cancer
     Dosage: 140 MG (80 MG/M2), ONCE IN A WEEK, 28 DAYS AS A CYCLE
     Route: 042
     Dates: start: 20210128
  10. PACLITAXEL [Suspect]
     Active Substance: PACLITAXEL
     Dosage: ONCE IN A WEEK, MOST RECENT DOSE OF PACLITAXEL PRIOR TO AE AND SAE
     Route: 042
     Dates: start: 20210414, end: 20210414
  11. EPIRUBICIN HYDROCHLORIDE [Suspect]
     Active Substance: EPIRUBICIN HYDROCHLORIDE
     Indication: Triple negative breast cancer
     Dosage: EVERY 2 WEEKS, 1ST TO 3RD CYCLE OF PD-L1+T-EC REGIMEN
     Route: 042
  12. EPIRUBICIN HYDROCHLORIDE [Suspect]
     Active Substance: EPIRUBICIN HYDROCHLORIDE
     Dosage: 160 MG (90 MG/M2) EVERY 2 WEEKS, FOURTH CYCLE (WEEK 1) OF PD-L1+T-EC REGIMEN, 28 DAYS AS A CYCLE
     Route: 042
     Dates: start: 20210421
  13. EPIRUBICIN HYDROCHLORIDE [Suspect]
     Active Substance: EPIRUBICIN HYDROCHLORIDE
     Dosage: 160 MG, EVERY 2 WEEKS,  FOURTH CYCLE (WEEK 3) OF PD-L1+T-EC REGIMEN
     Route: 042
     Dates: start: 20210513
  14. EPIRUBICIN HYDROCHLORIDE [Suspect]
     Active Substance: EPIRUBICIN HYDROCHLORIDE
     Dosage: 128 MG, EVERY 2 WEEKS, FIFTH CYCLE (WEEK 1) OF PD-LL+T-EC REGIMEN, MOST RECENT DOSE OF EPIRUBICIN PR
     Route: 042
     Dates: start: 20210604, end: 20210604
  15. FILGRASTIM [Suspect]
     Active Substance: FILGRASTIM
     Indication: Triple negative breast cancer
     Dosage: 6 MG, EVENRY 2 WEEKS, CYCLE 4 VISIT 1, SOLUTION
     Route: 058
     Dates: start: 20210423, end: 20210423
  16. FILGRASTIM [Suspect]
     Active Substance: FILGRASTIM
     Dosage: 6 MG, EVERY 2 WEEKS, CYCLE 5 VISIT 2
     Route: 058
     Dates: start: 20210612, end: 20210612
  17. PREDNISONE ACETATE [Concomitant]
     Active Substance: PREDNISONE ACETATE
     Indication: Adrenal insufficiency
     Dosage: UNK
     Route: 065
     Dates: start: 20210623, end: 20211230
  18. HYDROCORTISONE ACETATE [Concomitant]
     Active Substance: HYDROCORTISONE ACETATE
     Dosage: UNK
     Route: 065
     Dates: start: 20211231

REACTIONS (1)
  - Adrenal insufficiency [Not Recovered/Not Resolved]

NARRATIVE: CASE EVENT DATE: 20210623
